FAERS Safety Report 8357615-8 (Version None)
Quarter: 2012Q2

REPORT INFORMATION
  Report Type: 
  Country: None (occurrence: None)
  Receive Date: 20120510
  Receipt Date: 20120501
  Transmission Date: 20120825
  Serious: Yes (Other)
  Sender: FDA-Public Use
  Company Number: 2012SP023204

PATIENT
  Age: 48 Year
  Sex: Female

DRUGS (10)
  1. CHLORPHENIRAMINE TAB [Suspect]
     Indication: PRODUCT USED FOR UNKNOWN INDICATION
     Dosage: 10 MG; ;IV
     Route: 042
  2. NEULASTA [Suspect]
     Indication: CHEMOTHERAPY
     Dosage: 6 MG; SC
     Route: 058
  3. DEXAMETHASONE SODIUM PHOSPHATE [Suspect]
     Indication: PRODUCT USED FOR UNKNOWN INDICATION
     Dosage: 20 MG; ;IV
     Route: 042
  4. DOCUSATE [Concomitant]
  5. DOMPERIDONE (DOMPERIDONE) [Suspect]
     Indication: PRODUCT USED FOR UNKNOWN INDICATION
     Dosage: 20 MG; PO
     Route: 048
  6. GRANISETRON [Suspect]
     Indication: PRODUCT USED FOR UNKNOWN INDICATION
     Dosage: 1 MG;BID;PO
     Route: 048
  7. RANITIDINE [Suspect]
     Indication: PRODUCT USED FOR UNKNOWN INDICATION
     Dosage: 50 MG; IV
     Route: 042
  8. BIOTENE	- /00203502/ [Concomitant]
  9. DEXAMETHASONE [Suspect]
     Indication: PRODUCT USED FOR UNKNOWN INDICATION
     Dosage: 4 MG;BID;PO
     Route: 048
  10. PACLITAXEL [Suspect]
     Indication: BREAST CANCER
     Dosage: 315 MG;	;IV,  300 MG;IV
     Route: 042
     Dates: start: 20110524, end: 20110607

REACTIONS (3)
  - CHEST DISCOMFORT [None]
  - FATIGUE [None]
  - DYSPNOEA [None]
